FAERS Safety Report 6076630-0 (Version None)
Quarter: 2009Q1

REPORT INFORMATION
  Report Type: 
  Country: None (occurrence: None)
  Receive Date: 20090213
  Receipt Date: 20090105
  Transmission Date: 20090719
  Serious: No
  Sender: FDA-Public Use
  Company Number: US-BRISTOL-MYERS SQUIBB COMPANY-14461131

PATIENT
  Age: 5 Decade
  Sex: Female

DRUGS (2)
  1. IXEMPRA KIT [Suspect]
     Indication: BREAST CANCER METASTATIC
     Dosage: 40MG/M2 3 WEEK CYCLE
  2. XELODA [Suspect]
     Indication: CHEMOTHERAPY
     Route: 048

REACTIONS (1)
  - PLATELET COUNT DECREASED [None]
